FAERS Safety Report 4469665-2 (Version None)
Quarter: 2004Q4

REPORT INFORMATION
  Report Type: 
  Country: None (occurrence: None)
  Receive Date: 20041008
  Receipt Date: 20040906
  Transmission Date: 20050328
  Serious: Yes (Other)
  Sender: FDA-Public Use
  Company Number: DE-BRISTOL-MYERS SQUIBB COMPANY-12693222

PATIENT
  Age: 64 Year
  Sex: Female
  Weight: 65 kg

DRUGS (9)
  1. LITALIR [Suspect]
     Indication: ESSENTIAL THROMBOCYTHAEMIA
     Dates: start: 19980101, end: 20030101
  2. LEVOTHYROXINE SODIUM [Concomitant]
     Indication: HYPOTHYROIDISM
  3. ACETYLSALICYLIC ACID [Concomitant]
     Indication: MYELOPROLIFERATIVE DISORDER
  4. CITALOPRAM [Concomitant]
     Indication: PARKINSONISM
  5. LEVODOPA [Concomitant]
     Indication: PARKINSONISM
  6. ENTACAPONE [Concomitant]
     Indication: PARKINSONISM
  7. LEVODOPA + BENSERAZIDE [Concomitant]
     Indication: PARKINSONISM
  8. CANDESARTAN [Concomitant]
  9. MOLSIDOMINE [Concomitant]

REACTIONS (1)
  - PULMONARY HYPERTENSION [None]
